FAERS Safety Report 14435880 (Version 1)
Quarter: 2018Q1

REPORT INFORMATION
  Report Type: Spontaneous
  Country: US (occurrence: US)
  Receive Date: 20180125
  Receipt Date: 20180125
  Transmission Date: 20180509
  Serious: No
  Sender: FDA-Public Use
  Company Number: US-UNITED THERAPEUTICS-UNT-2017-010662

PATIENT
  Sex: Female

DRUGS (1)
  1. REMODULIN [Suspect]
     Active Substance: TREPROSTINIL
     Indication: PRODUCT USED FOR UNKNOWN INDICATION
     Dosage: 0.062 ?G, CONTINUING
     Route: 058
     Dates: start: 20130112

REACTIONS (2)
  - Oedema peripheral [Unknown]
  - Cellulitis [Unknown]

NARRATIVE: CASE EVENT DATE: 20170713
